FAERS Safety Report 8012143-4 (Version None)
Quarter: 2011Q4

REPORT INFORMATION
  Report Type: 
  Country: None (occurrence: None)
  Receive Date: 20111228
  Receipt Date: 20111223
  Transmission Date: 20120403
  Serious: No
  Sender: FDA-Public Use
  Company Number: US-B.I. PHARMACEUTICALS,INC./RIDGEFIELD-2011-BP-28824BP

PATIENT
  Sex: Female

DRUGS (1)
  1. TRADJENTA [Suspect]
     Indication: TYPE 2 DIABETES MELLITUS
     Dosage: 5 MG
     Route: 048
     Dates: start: 20111216, end: 20111222

REACTIONS (15)
  - NASOPHARYNGITIS [None]
  - CONSTIPATION [None]
  - ANOSMIA [None]
  - DYSPHONIA [None]
  - ABDOMINAL DISCOMFORT [None]
  - RHINALGIA [None]
  - HEART RATE INCREASED [None]
  - OROPHARYNGEAL PAIN [None]
  - IRRITABILITY [None]
  - HEADACHE [None]
  - SNEEZING [None]
  - RHINORRHOEA [None]
  - ASTHENIA [None]
  - CONFUSIONAL STATE [None]
  - HUNGER [None]
